FAERS Safety Report 12909542 (Version 1)
Quarter: 2016Q4

REPORT INFORMATION
  Report Type: Report from Study
  Country: TW (occurrence: TW)
  Receive Date: 20161104
  Receipt Date: 20161104
  Transmission Date: 20170207
  Serious: Yes (Other)
  Sender: FDA-Public Use
  Company Number: TW-ROCHE-1847888

PATIENT

DRUGS (2)
  1. RIBAVIRIN. [Suspect]
     Active Substance: RIBAVIRIN
     Indication: HEPATITIS C
     Route: 048
  2. PEG-INTERFERON ALFA 2A [Suspect]
     Active Substance: PEGINTERFERON ALFA-2A
     Indication: HEPATITIS C
     Route: 058

REACTIONS (16)
  - Depression [Unknown]
  - Diarrhoea [Unknown]
  - Cough [Unknown]
  - Headache [Unknown]
  - Irritability [Unknown]
  - Alopecia [Unknown]
  - Mouth ulceration [Unknown]
  - Dermatitis [Unknown]
  - Insomnia [Unknown]
  - Influenza like illness [Unknown]
  - Decreased appetite [Unknown]
  - Anaemia [Unknown]
  - Injection site reaction [Unknown]
  - Leukopenia [Unknown]
  - Thrombocytopenia [Unknown]
  - Fatigue [Unknown]
